FAERS Safety Report 9202682 (Version 2)
Quarter: 2013Q2

REPORT INFORMATION
  Report Type: Spontaneous
  Country: IT (occurrence: IT)
  Receive Date: 20130401
  Receipt Date: 20130411
  Transmission Date: 20140414
  Serious: Yes (Other)
  Sender: FDA-Public Use
  Company Number: IT-MERCK-1303ITA012681

PATIENT
  Age: 56 Year
  Sex: Male

DRUGS (3)
  1. THERAPY UNSPECIFIED [Suspect]
  2. MEDIPO [Suspect]
     Indication: HYPERCHOLESTEROLAEMIA
     Dosage: UNKNOWN
     Route: 048
  3. MEDIPO [Suspect]
     Dosage: 10 MG, QD
     Route: 048

REACTIONS (3)
  - Myasthenia gravis [Recovering/Resolving]
  - Respiratory acidosis [None]
  - Condition aggravated [None]
